FAERS Safety Report 7998390-6 (Version None)
Quarter: 2011Q4

REPORT INFORMATION
  Report Type: 
  Country: None (occurrence: None)
  Receive Date: 20111221
  Receipt Date: 20110913
  Transmission Date: 20120403
  Serious: No
  Sender: FDA-Public Use
  Company Number: US-GLAXOSMITHKLINE-A0944455A

PATIENT
  Age: 68 Year
  Sex: Male

DRUGS (3)
  1. MULTI-VITAMIN [Concomitant]
  2. VYTORIN [Concomitant]
  3. LOVAZA [Suspect]
     Indication: BLOOD TRIGLYCERIDES INCREASED
     Dosage: 2G TWICE PER DAY
     Route: 048
     Dates: start: 20110601

REACTIONS (2)
  - PRODUCT QUALITY ISSUE [None]
  - BLOOD TRIGLYCERIDES INCREASED [None]
